FAERS Safety Report 6664113-6 (Version None)
Quarter: 2010Q2

REPORT INFORMATION
  Report Type: 
  Country: None (occurrence: None)
  Receive Date: 20100401
  Receipt Date: 20100325
  Transmission Date: 20101027
  Serious: Yes (Life-Threatening)
  Sender: FDA-Public Use
  Company Number: B0620789A

PATIENT
  Sex: Female

DRUGS (14)
  1. PAXIL [Suspect]
     Indication: DEPRESSION
     Dosage: 20MG PER DAY
     Route: 048
     Dates: start: 20090625, end: 20090701
  2. PAXIL [Suspect]
     Dosage: 40MG PER DAY
     Route: 048
     Dates: start: 20090702, end: 20090707
  3. TOLEDOMIN [Concomitant]
     Route: 048
  4. HALCION [Concomitant]
     Route: 048
  5. NELBON [Concomitant]
     Route: 048
  6. HIBERNA [Concomitant]
     Route: 065
  7. CARBAMAZEPINE [Concomitant]
     Indication: PROPHYLAXIS
     Dosage: 40MG PER DAY
     Route: 048
  8. DIAZEPAM [Concomitant]
     Indication: DEPRESSION
     Dosage: 2MG PER DAY
     Route: 048
  9. CAFFEINE + SODIUM BENZOATE [Concomitant]
     Indication: MIGRAINE
     Dosage: 20MG PER DAY
     Route: 048
  10. ASCOMARNA [Concomitant]
     Dosage: 25MG PER DAY
     Route: 048
  11. ROHYPNOL [Concomitant]
     Dosage: 2MG PER DAY
     Route: 048
  12. SODIUM VALPROATE [Concomitant]
     Indication: MANIA
     Dosage: 200MG PER DAY
     Route: 048
  13. SOLANAX [Concomitant]
     Indication: ANXIETY
     Route: 048
  14. ZOLOFT [Concomitant]
     Indication: DEPRESSION
     Dosage: 25MG PER DAY
     Route: 048
     Dates: start: 20090708

REACTIONS (2)
  - CYANOSIS [None]
  - OVERDOSE [None]
